FAERS Safety Report 10684950 (Version 1)
Quarter: 2014Q4

REPORT INFORMATION
  Report Type: Spontaneous
  Country: CA (occurrence: CA)
  Receive Date: 20141231
  Receipt Date: 20141231
  Transmission Date: 20150529
  Serious: Yes (Other)
  Sender: FDA-Public Use
  Company Number: CA-PFIZER INC-2014361680

PATIENT
  Age: 33 Year
  Sex: Male

DRUGS (2)
  1. MORPHINE SULFATE. [Suspect]
     Active Substance: MORPHINE SULFATE
     Dosage: UNK
     Route: 065
  2. COCAINE [Suspect]
     Active Substance: COCAINE
     Dosage: UNK
     Route: 065

REACTIONS (5)
  - Substance abuse [Not Recovered/Not Resolved]
  - Bipolar disorder [Unknown]
  - Polysubstance dependence [Unknown]
  - Hallucination [Unknown]
  - Suicidal ideation [Unknown]
